FAERS Safety Report 21011238 (Version 2)
Quarter: 2022Q2

REPORT INFORMATION
  Report Type: Report from Study
  Country: IT (occurrence: IT)
  Receive Date: 20220627
  Receipt Date: 20220629
  Transmission Date: 20220721
  Serious: Yes (Hospitalization)
  Sender: FDA-Public Use
  Company Number: IT-MYLANLABS-2022M1048758

PATIENT

DRUGS (5)
  1. CLOZAPINE [Interacting]
     Active Substance: CLOZAPINE
     Indication: Schizoaffective disorder
     Dosage: 400 MILLIGRAM (DEFINED DAILY DOSE: 300MG)
     Route: 065
  2. LORAZEPAM [Interacting]
     Active Substance: LORAZEPAM
     Indication: Schizoaffective disorder
     Dosage: 3 MILLIGRAM
     Route: 065
  3. LORAZEPAM [Interacting]
     Active Substance: LORAZEPAM
     Indication: Symptomatic treatment
  4. VALPROIC ACID [Concomitant]
     Active Substance: VALPROIC ACID
     Indication: Schizoaffective disorder
     Dosage: 1000 MILLIGRAM
     Route: 065
  5. BIPERIDEN [Concomitant]
     Active Substance: BIPERIDEN
     Indication: Schizoaffective disorder
     Dosage: 4 MILLIGRAM
     Route: 065

REACTIONS (3)
  - Drug interaction [Unknown]
  - Drooling [Unknown]
  - Product use in unapproved indication [Unknown]
